FAERS Safety Report 15253938 (Version 1)
Quarter: 2018Q4

REPORT INFORMATION
  Report Type: Spontaneous
  Country: IN (occurrence: IN)
  Receive Date: 20180808
  Receipt Date: 20180808
  Transmission Date: 20190204
  Serious: Yes (Hospitalization, Other)
  Sender: FDA-Public Use
  Company Number: IN-HETERO CORPORATE-HET2018IN00747

PATIENT
  Age: 32 Year
  Sex: Male

DRUGS (1)
  1. SILDENAFIL. [Suspect]
     Active Substance: SILDENAFIL
     Indication: ERECTILE DYSFUNCTION
     Dosage: 3000 MG
     Route: 065

REACTIONS (10)
  - Dehydration [Unknown]
  - Tachycardia [Unknown]
  - Priapism [Unknown]
  - Overdose [Unknown]
  - Toxicity to various agents [Unknown]
  - Dizziness [Unknown]
  - Vomiting [Unknown]
  - Flushing [Unknown]
  - Headache [Unknown]
  - Suicide attempt [Unknown]
